FAERS Safety Report 9720137 (Version 1)
Quarter: 2013Q4

REPORT INFORMATION
  Report Type: Spontaneous
  Country: US (occurrence: US)
  Receive Date: 20131128
  Receipt Date: 20131128
  Transmission Date: 20140711
  Serious: Yes (Death)
  Sender: FDA-Public Use
  Company Number: US-INDICUS PHARMA-000179

PATIENT
  Age: 18 Year
  Sex: Female

DRUGS (4)
  1. METFORMIN HYDROCHLORIDE [Suspect]
     Route: 048
  2. DILTIAZEM [Suspect]
     Dosage: DILTIAZEM (EXTENDED?RELEASE)
     Route: 048
  3. ESOMEPRAZOLE [Suspect]
     Route: 048
  4. PREGABALIN [Suspect]
     Route: 048

REACTIONS (2)
  - Completed suicide [Fatal]
  - Exposure via ingestion [Fatal]
